FAERS Safety Report 11660235 (Version 2)
Quarter: 2015Q4

REPORT INFORMATION
  Report Type: Spontaneous
  Country: JP (occurrence: JP)
  Receive Date: 20151026
  Receipt Date: 20151028
  Transmission Date: 20160304
  Serious: Yes (Death, Other)
  Sender: FDA-Public Use
  Company Number: JP-TEVA-604374ISR

PATIENT
  Age: 7 Decade
  Sex: Male
  Weight: 65.5 kg

DRUGS (3)
  1. ZOLPIDEM [Suspect]
     Active Substance: ZOLPIDEM\ZOLPIDEM TARTRATE
     Indication: INSOMNIA
     Route: 065
  2. PARACETAMOL W/TRAMADOL [Concomitant]
  3. CHLORPHENIRAMINE. [Concomitant]
     Active Substance: CHLORPHENIRAMINE
     Indication: ANTIALLERGIC THERAPY

REACTIONS (2)
  - Abnormal behaviour [Fatal]
  - Somnambulism [Not Recovered/Not Resolved]
